FAERS Safety Report 9789636 (Version 1)
Quarter: 2013Q4

REPORT INFORMATION
  Report Type: Spontaneous
  Country: AU (occurrence: AU)
  Receive Date: 20131231
  Receipt Date: 20131231
  Transmission Date: 20140711
  Serious: Yes (Hospitalization)
  Sender: FDA-Public Use
  Company Number: AU-ALEXION PHARMACEUTICALS INC.-A201304434

PATIENT
  Age: 82 Year
  Sex: Male

DRUGS (5)
  1. SOLIRIS 300MG [Suspect]
     Indication: PAROXYSMAL NOCTURNAL HAEMOGLOBINURIA
     Dosage: 900 MG, Q2W
     Route: 042
     Dates: start: 20131011
  2. EPILIM [Concomitant]
  3. ZYLOPRIM [Concomitant]
  4. OROXINE [Concomitant]
  5. NEXIUM [Concomitant]

REACTIONS (5)
  - Psychotic disorder [Not Recovered/Not Resolved]
  - Pneumonia [Recovered/Resolved]
  - Haemoglobin decreased [Recovering/Resolving]
  - Influenza like illness [Unknown]
  - Pyrexia [Unknown]
